FAERS Safety Report 5330351-8 (Version None)
Quarter: 2007Q2

REPORT INFORMATION
  Report Type: 
  Country: None (occurrence: None)
  Receive Date: 20070521
  Receipt Date: 20070511
  Transmission Date: 20071010
  Serious: Yes (Other)
  Sender: FDA-Public Use
  Company Number: US-PFIZER INC-2006086295

PATIENT
  Sex: Female
  Weight: 93.9 kg

DRUGS (6)
  1. CELEBREX [Suspect]
     Indication: ARTHRITIS
     Dates: start: 19990101, end: 20060901
  2. PREDNISONE TAB [Concomitant]
  3. MUSCLE RELAXANTS [Concomitant]
  4. DARVOCET [Concomitant]
  5. TRIAMTERENE [Concomitant]
  6. ANTIHYPERTENSIVES [Concomitant]

REACTIONS (22)
  - ABDOMINAL PAIN UPPER [None]
  - ANGINA PECTORIS [None]
  - ARTHRITIS [None]
  - BLOOD CHOLESTEROL INCREASED [None]
  - BLOOD IRON DECREASED [None]
  - CARDIAC DISORDER [None]
  - CHOLELITHIASIS [None]
  - CORONARY ARTERY OCCLUSION [None]
  - DIVERTICULUM [None]
  - DYSKINESIA OESOPHAGEAL [None]
  - DYSPEPSIA [None]
  - DYSPNOEA [None]
  - GASTRIC DISORDER [None]
  - GASTRIC ULCER [None]
  - GASTRITIS HAEMORRHAGIC [None]
  - HAEMORRHOIDS [None]
  - HIATUS HERNIA [None]
  - MUSCLE TIGHTNESS [None]
  - REFLUX OESOPHAGITIS [None]
  - RENAL DISORDER [None]
  - RENAL FAILURE [None]
  - VOMITING [None]
